FAERS Safety Report 13073129 (Version 1)
Quarter: 2016Q4

REPORT INFORMATION
  Report Type: Spontaneous
  Country: CA (occurrence: CA)
  Receive Date: 20161229
  Receipt Date: 20161229
  Transmission Date: 20170207
  Serious: Yes (Other)
  Sender: FDA-Public Use
  Company Number: CA-LHC-2016200

PATIENT
  Age: 55 Year
  Sex: Male

DRUGS (1)
  1. OXYGEN. [Suspect]
     Active Substance: OXYGEN
     Indication: SYSTEMIC SCLERODERMA

REACTIONS (2)
  - Off label use [Unknown]
  - Myopia [Recovered/Resolved]
